FAERS Safety Report 6409790-X (Version None)
Quarter: 2009Q4

REPORT INFORMATION
  Report Type: 
  Country: None (occurrence: None)
  Receive Date: 20091022
  Receipt Date: 20091013
  Transmission Date: 20100525
  Serious: Yes (Other)
  Sender: FDA-Public Use
  Company Number: US-JNJFOC-20091004993

PATIENT
  Sex: Male
  Weight: 86.18 kg

DRUGS (6)
  1. DURAGESIC-100 [Suspect]
     Indication: NEURALGIA
     Dosage: 100+50 UG/HR PATCHES
     Route: 062
     Dates: start: 20010101, end: 20090930
  2. OXYCODONE [Concomitant]
     Indication: PAIN
     Dosage: 4 IN 24 HOURS AS NEEDED
     Route: 048
  3. ANDROGEL [Concomitant]
     Indication: HORMONE REPLACEMENT THERAPY
     Route: 061
  4. LANTUS [Concomitant]
     Indication: DIABETES MELLITUS
     Dosage: 20 UNITS
     Route: 058
  5. ACTOS [Concomitant]
     Indication: DIABETES MELLITUS
     Route: 048
  6. NOVOLOG [Concomitant]
     Indication: DIABETES MELLITUS
     Dosage: 8 UNITS
     Route: 058

REACTIONS (3)
  - CONSTIPATION [None]
  - DIABETES MELLITUS [None]
  - THYROID DISORDER [None]
